FAERS Safety Report 13660244 (Version 1)
Quarter: 2017Q2

REPORT INFORMATION
  Report Type: Spontaneous
  Country: US (occurrence: US)
  Receive Date: 20170616
  Receipt Date: 20170616
  Transmission Date: 20170830
  Serious: No
  Sender: FDA-Public Use
  Company Number: US-LEXICON PHARMACEUTICALS, INC-17-1606-00327

PATIENT
  Age: 57 Year
  Sex: Female

DRUGS (30)
  1. MULTIVITAMIN [Concomitant]
     Active Substance: VITAMINS
  2. DICYCLOMINE [Concomitant]
     Active Substance: DICYCLOMINE HYDROCHLORIDE
  3. GABAPENTIN. [Concomitant]
     Active Substance: GABAPENTIN
  4. OCTREOTIDE. [Concomitant]
     Active Substance: OCTREOTIDE
  5. XARELTO [Concomitant]
     Active Substance: RIVAROXABAN
  6. LOPRESSOR [Concomitant]
     Active Substance: METOPROLOL TARTRATE
  7. SINGULAIR [Concomitant]
     Active Substance: MONTELUKAST SODIUM
  8. POTASSIUM [Concomitant]
     Active Substance: POTASSIUM
  9. TYLENOL [Concomitant]
     Active Substance: ACETAMINOPHEN
  10. CALCIUM [Concomitant]
     Active Substance: CALCIUM
  11. ALBUTEROL. [Concomitant]
     Active Substance: ALBUTEROL
  12. FEXOFENADINE [Concomitant]
     Active Substance: FEXOFENADINE\FEXOFENADINE HYDROCHLORIDE
  13. POLYETHYLENE GLYCOL [Concomitant]
     Active Substance: POLYETHYLENE GLYCOLS
  14. CRESTOR [Concomitant]
     Active Substance: ROSUVASTATIN CALCIUM
  15. ASCORBIC ACID. [Concomitant]
     Active Substance: ASCORBIC ACID
  16. CLOPIDOGREL [Concomitant]
     Active Substance: CLOPIDOGREL BISULFATE
  17. LOMOTIL [Concomitant]
     Active Substance: ATROPINE SULFATE\DIPHENOXYLATE HYDROCHLORIDE
  18. LEVOTHYROXINE. [Concomitant]
     Active Substance: LEVOTHYROXINE
  19. OXYCODONE [Concomitant]
     Active Substance: OXYCODONE
  20. AMLODIPINE [Concomitant]
     Active Substance: AMLODIPINE BESYLATE
  21. LORAZEPAM. [Concomitant]
     Active Substance: LORAZEPAM
  22. MAGNESIUM OXIDE. [Concomitant]
     Active Substance: MAGNESIUM OXIDE
  23. PREDNISONE. [Concomitant]
     Active Substance: PREDNISONE
  24. TELOTRISTAT ETHYL [Suspect]
     Active Substance: TELOTRISTAT ETHYL
     Indication: CARCINOID SYNDROME
     Route: 048
     Dates: start: 20170520
  25. CREON [Concomitant]
     Active Substance: PANCRELIPASE AMYLASE\PANCRELIPASE LIPASE\PANCRELIPASE PROTEASE
  26. VITAMIN B COMPLEX [Concomitant]
     Active Substance: CYANOCOBALAMIN\DEXPANTHENOL\NIACINAMIDE\PYRIDOXINE HYDROCHLORIDE\RIBOFLAVIN 5^-PHOSPHATE SODIUM\THIAMINE HYDROCHLORIDE\VITAMIN B COMPLEX
  27. WELLBUTRIN [Concomitant]
     Active Substance: BUPROPION HYDROCHLORIDE
  28. FUROSEMIDE. [Concomitant]
     Active Substance: FUROSEMIDE
  29. NITROGLYCERIN. [Concomitant]
     Active Substance: NITROGLYCERIN
  30. DIOVAN [Concomitant]
     Active Substance: VALSARTAN

REACTIONS (2)
  - Diarrhoea [Recovering/Resolving]
  - Fungal infection [Not Recovered/Not Resolved]

NARRATIVE: CASE EVENT DATE: 201705
